FAERS Safety Report 8419436 (Version 9)
Quarter: 2013Q1

REPORT INFORMATION
  Report Type: Spontaneous
  Country: CA (occurrence: CA)
  Receive Date: 20120221
  Receipt Date: 20130121
  Transmission Date: 20140127
  Serious: Yes (Hospitalization)
  Sender: FDA-Public Use
  Company Number: PHHY2011CA63588

PATIENT
  Age: 51 Year
  Sex: Female

DRUGS (22)
  1. GILENYA [Suspect]
     Indication: RELAPSING-REMITTING MULTIPLE SCLEROSIS
     Dosage: 0.5 MG
     Route: 048
     Dates: start: 20110711, end: 20120711
  2. GILENYA [Suspect]
     Dosage: 0.5 MG, BID
     Route: 048
     Dates: start: 20110725
  3. BACLOFEN [Concomitant]
     Dosage: UNK UKN, UNK
  4. VITAMIN D [Concomitant]
     Dosage: UNK UKN, UNK
  5. CALCIUM [Concomitant]
     Dosage: UNK UKN, UNK
  6. B COMPLEX [Concomitant]
     Dosage: UNK UKN, UNK
  7. MULTIVITAMINS [Concomitant]
     Dosage: UNK UKN, UNK
  8. VITAMIN C [Concomitant]
     Dosage: UNK UKN, UNK
  9. CANNABIS [Concomitant]
     Dosage: UNK UKN, UNK
  10. TYLENOL [Concomitant]
     Dosage: 1000 MG, UNK
  11. HORMONES [Concomitant]
     Dosage: UNK UKN, UNK
  12. ELAVIL [Concomitant]
     Dosage: UNK UKN, UNK
  13. AMANTADINE [Concomitant]
     Dosage: UNK UKN, UNK
  14. CYMBALTA [Concomitant]
     Dosage: UNK UKN, UNK
  15. RITALIN [Concomitant]
     Dosage: UNK UKN, UNK
  16. LOSEC [Concomitant]
     Dosage: UNK UKN, UNK
  17. ESTRADIOL [Concomitant]
     Dosage: UNK UKN, UNK
  18. PROMETRIUM [Concomitant]
     Dosage: UNK UKN, UNK
  19. CELEBREX [Concomitant]
     Dosage: UNK UKN, UNK
  20. FENTANYL [Concomitant]
     Dosage: UNK UKN, UNK
  21. M-ESLON [Concomitant]
     Dosage: UNK UKN, UNK
  22. STATEX [Concomitant]
     Dosage: UNK UKN, UNK

REACTIONS (15)
  - Femur fracture [Recovering/Resolving]
  - Hip fracture [Recovering/Resolving]
  - Fall [Recovering/Resolving]
  - Eye oedema [Unknown]
  - Arthralgia [Unknown]
  - Feeling cold [Unknown]
  - Peripheral coldness [Unknown]
  - Nausea [Unknown]
  - Fatigue [Unknown]
  - Somnolence [Unknown]
  - Local swelling [Recovered/Resolved]
  - Pain [Unknown]
  - Headache [Recovered/Resolved]
  - Dizziness [Unknown]
  - Overdose [Unknown]
